FAERS Safety Report 21193268 (Version 2)
Quarter: 2025Q1

REPORT INFORMATION
  Report Type: Spontaneous
  Country: US (occurrence: US)
  Receive Date: 20220810
  Receipt Date: 20250206
  Transmission Date: 20250408
  Serious: Yes (Hospitalization, Other)
  Sender: BRISTOL-MYERS SQUIBB COMPANY
  Company Number: US-BRISTOL-MYERS SQUIBB COMPANY-2022-085810

PATIENT
  Age: 65 Year
  Sex: Male
  Weight: 88.45 kg

DRUGS (2)
  1. REVLIMID [Suspect]
     Active Substance: LENALIDOMIDE
     Indication: Plasma cell myeloma
     Dosage: ONCE A DAY FOR 21 DAYS THEN 7 DAYS OFF
     Route: 048
     Dates: start: 2021
  2. UNSPECIFIED INGREDIENT [Concomitant]
     Active Substance: UNSPECIFIED INGREDIENT
     Indication: Product used for unknown indication

REACTIONS (5)
  - Seizure [Recovering/Resolving]
  - Fatigue [Unknown]
  - Tremor [Unknown]
  - Hypersomnia [Unknown]
  - Malaise [Unknown]

NARRATIVE: CASE EVENT DATE: 20220713
